FAERS Safety Report 7190157-4 (Version None)
Quarter: 2010Q4

REPORT INFORMATION
  Report Type: 
  Country: None (occurrence: None)
  Receive Date: 20101221
  Receipt Date: 20101221
  Transmission Date: 20110411
  Serious: No
  Sender: FDA-Public Use
  Company Number: None

PATIENT

DRUGS (1)
  1. CLONAZEPAM [Suspect]
     Indication: CONVULSION
     Dates: start: 20101130

REACTIONS (3)
  - DIARRHOEA [None]
  - HEADACHE [None]
  - PRODUCT SOLUBILITY ABNORMAL [None]
